FAERS Safety Report 20849259 (Version 1)
Quarter: 2022Q2

REPORT INFORMATION
  Report Type: Spontaneous
  Country: US (occurrence: US)
  Receive Date: 20220519
  Receipt Date: 20220519
  Transmission Date: 20220721
  Serious: Yes (Other)
  Sender: FDA-Public Use
  Company Number: US-Blueprint Medicines Corporation-117

PATIENT
  Sex: Female

DRUGS (3)
  1. AYVAKIT [Suspect]
     Active Substance: AVAPRITINIB
     Indication: Systemic mastocytosis
     Route: 048
     Dates: start: 20210630
  2. AYVAKIT [Suspect]
     Active Substance: AVAPRITINIB
     Route: 048
     Dates: start: 20210630
  3. MELATONIN [Concomitant]
     Active Substance: MELATONIN
     Indication: Product used for unknown indication
     Route: 065

REACTIONS (8)
  - Pericardial effusion [Unknown]
  - Poor peripheral circulation [Unknown]
  - Peripheral coldness [Unknown]
  - Temperature intolerance [Unknown]
  - Sleep disorder [Unknown]
  - Fatigue [Unknown]
  - Peripheral swelling [Unknown]
  - Swelling face [Unknown]
